FAERS Safety Report 6734206-3 (Version None)
Quarter: 2010Q2

REPORT INFORMATION
  Report Type: 
  Country: None (occurrence: None)
  Receive Date: 20100520
  Receipt Date: 20100517
  Transmission Date: 20101027
  Serious: Yes (Other)
  Sender: FDA-Public Use
  Company Number: US-ELI_LILLY_AND_COMPANY-US201005004756

PATIENT
  Sex: Female

DRUGS (1)
  1. HUMULIN 70/30 [Suspect]
     Dates: start: 20010101

REACTIONS (4)
  - BLINDNESS UNILATERAL [None]
  - MACULAR DEGENERATION [None]
  - RETINAL SCAR [None]
  - VISUAL ACUITY REDUCED [None]
